FAERS Safety Report 7134165-8 (Version None)
Quarter: 2010Q4

REPORT INFORMATION
  Report Type: 
  Country: None (occurrence: None)
  Receive Date: 20101117
  Receipt Date: 20101108
  Transmission Date: 20110411
  Serious: Yes (Hospitalization)
  Sender: FDA-Public Use
  Company Number: 020300

PATIENT
  Age: 40 Year
  Sex: Male

DRUGS (4)
  1. VIMPAT [Suspect]
     Indication: CONVULSION
     Dosage: 150 MG BID ORAL
     Route: 048
     Dates: start: 20100701
  2. TEGRETOL [Concomitant]
  3. PHENYTOIN [Concomitant]
  4. CITALOPRAM [Concomitant]

REACTIONS (2)
  - PARANOIA [None]
  - PSYCHOTIC DISORDER [None]
